FAERS Safety Report 16538419 (Version 1)
Quarter: 2019Q3

REPORT INFORMATION
  Report Type: Spontaneous
  Country: US (occurrence: US)
  Receive Date: 20190523
  Receipt Date: 20190523
  Transmission Date: 20191004
  Serious: No
  Sender: FDA-Public Use
  Company Number: None

PATIENT
  Age: 85 Year
  Sex: Male

DRUGS (1)
  1. DOCETAXEL INJ 20MG/ML [Suspect]
     Active Substance: DOCETAXEL
     Dosage: ?          OTHER DOSE:OTHER;OTHER ROUTE:INTRAVESICAL?
     Dates: start: 201905

REACTIONS (1)
  - Off label use [None]

NARRATIVE: CASE EVENT DATE: 20190523
